FAERS Safety Report 23625973 (Version 1)
Quarter: 2024Q1

REPORT INFORMATION
  Report Type: Spontaneous
  Country: CA (occurrence: CA)
  Receive Date: 20240313
  Receipt Date: 20240313
  Transmission Date: 20240409
  Serious: Yes (Hospitalization, Other)
  Sender: FDA-Public Use
  Company Number: CA-SUN PHARMACEUTICAL INDUSTRIES LTD-2024R1-435294

PATIENT
  Age: 13 Year
  Sex: Male

DRUGS (3)
  1. SODIUM CHLORIDE [Suspect]
     Active Substance: SODIUM CHLORIDE
     Indication: Intracranial pressure increased
     Dosage: UNK 3ML/KG
     Route: 065
  2. TRANEXAMIC ACID [Suspect]
     Active Substance: TRANEXAMIC ACID
     Indication: Intracranial pressure increased
     Dosage: UNK
     Route: 065
  3. MANNITOL [Suspect]
     Active Substance: MANNITOL
     Indication: Intracranial pressure increased
     Dosage: 0.5 G/KG
     Route: 065

REACTIONS (5)
  - Condition aggravated [Unknown]
  - Intracranial pressure increased [Unknown]
  - Pupil fixed [Unknown]
  - Heart rate decreased [Unknown]
  - Neurological decompensation [Unknown]
